FAERS Safety Report 25130568 (Version 1)
Quarter: 2025Q1

REPORT INFORMATION
  Report Type: Spontaneous
  Country: AR (occurrence: AR)
  Receive Date: 20250327
  Receipt Date: 20250327
  Transmission Date: 20250408
  Serious: Yes (Other)
  Sender: JOHNSON AND JOHNSON
  Company Number: AR-JNJFOC-20250365814

PATIENT
  Sex: Female

DRUGS (1)
  1. TECVAYLI [Suspect]
     Active Substance: TECLISTAMAB-CQYV
     Indication: Plasma cell myeloma
     Route: 065

REACTIONS (3)
  - Hypokalaemia [Unknown]
  - Enterocolitis [Unknown]
  - Pyrexia [Unknown]

NARRATIVE: CASE EVENT DATE: 20241127
